FAERS Safety Report 5321329-9 (Version None)
Quarter: 2007Q2

REPORT INFORMATION
  Report Type: 
  Country: None (occurrence: None)
  Receive Date: 20070507
  Receipt Date: 20070507
  Transmission Date: 20071010
  Serious: Yes (Hospitalization)
  Sender: FDA-Public Use
  Company Number: None

PATIENT
  Age: 85 Year
  Sex: Male
  Weight: 68 kg

DRUGS (1)
  1. EZETIMIBE 5MG/SIMVASTATIN 40MG [Suspect]
     Indication: HYPERLIPIDAEMIA
     Dosage: ONE TABLET AT BEDTIME
     Dates: start: 20060905, end: 20070111

REACTIONS (3)
  - QUADRIPARESIS [None]
  - RENAL FAILURE [None]
  - RHABDOMYOLYSIS [None]
